FAERS Safety Report 5780297-6 (Version None)
Quarter: 2008Q2

REPORT INFORMATION
  Report Type: 
  Country: None (occurrence: None)
  Receive Date: 20080620
  Receipt Date: 20080610
  Transmission Date: 20081010
  Serious: Yes (Other)
  Sender: FDA-Public Use
  Company Number: US-AVENTIS-200813624US

PATIENT
  Age: 65 Year
  Sex: Female
  Weight: 58 kg

DRUGS (2)
  1. LOVENOX [Suspect]
     Indication: PROPHYLAXIS
     Dosage: DOSE: 40 MG - 3 DOSES
     Route: 058
     Dates: start: 20080604, end: 20080606
  2. LOVENOX [Suspect]
     Dosage: DOSE: 50 MG - 8 DOSES
     Route: 058
     Dates: start: 20080606, end: 20080610

REACTIONS (2)
  - CATHETER SITE HAEMORRHAGE [None]
  - DRUG EFFECT INCREASED [None]
